FAERS Safety Report 6611831-1 (Version None)
Quarter: 2010Q1

REPORT INFORMATION
  Report Type: 
  Country: None (occurrence: None)
  Receive Date: 20100303
  Receipt Date: 20100223
  Transmission Date: 20100710
  Serious: Yes (Hospitalization, Other)
  Sender: FDA-Public Use
  Company Number: BR-ROCHE-687193

PATIENT
  Sex: Female
  Weight: 44 kg

DRUGS (9)
  1. RIVOTRIL [Suspect]
     Indication: SEDATIVE THERAPY
     Route: 048
  2. RIVOTRIL [Suspect]
     Route: 048
     Dates: start: 20051201
  3. RIVOTRIL [Suspect]
     Route: 048
     Dates: start: 20060101, end: 20080101
  4. ZYPREXA [Concomitant]
     Dates: start: 20050101
  5. CARBOLITIUM [Concomitant]
  6. EFFEXOR [Concomitant]
     Dosage: DRUG NAME: EFEXOR XR
  7. AMPLICTIL [Concomitant]
     Dates: start: 20060101, end: 20080101
  8. VENLIFT [Concomitant]
  9. BUP-4 [Concomitant]

REACTIONS (19)
  - AFFECT LABILITY [None]
  - ALOPECIA [None]
  - ANAL HAEMORRHAGE [None]
  - DECREASED APPETITE [None]
  - DEPRESSION [None]
  - EMOTIONAL DISTRESS [None]
  - EPISTAXIS [None]
  - FEEDING DISORDER [None]
  - LABYRINTHITIS [None]
  - MALAISE [None]
  - NERVOUSNESS [None]
  - OBSESSIVE THOUGHTS [None]
  - OOPHORITIS [None]
  - PAIN [None]
  - TRANSPLANT [None]
  - UNDERWEIGHT [None]
  - VAGINAL HAEMORRHAGE [None]
  - VOMITING [None]
  - WEIGHT DECREASED [None]
